FAERS Safety Report 12095407 (Version 1)
Quarter: 2016Q1

REPORT INFORMATION
  Report Type: Spontaneous
  Country: GB (occurrence: GB)
  Receive Date: 20160219
  Receipt Date: 20160219
  Transmission Date: 20160526
  Serious: Yes (Congenital Anomaly, Other)
  Sender: FDA-Public Use
  Company Number: GB-009507513-0705USA03207

PATIENT
  Sex: Male

DRUGS (9)
  1. NIACINAMIDE [Suspect]
     Active Substance: NIACINAMIDE
     Route: 064
  2. THIAMINE MONONITRATE [Suspect]
     Active Substance: THIAMINE MONONITRATE
     Route: 064
  3. HYDRODIURIL [Suspect]
     Active Substance: HYDROCHLOROTHIAZIDE
     Route: 064
  4. PYRIDOXINE [Suspect]
     Active Substance: PYRIDOXINE
     Route: 064
  5. LISINOPRIL. [Suspect]
     Active Substance: LISINOPRIL
     Dosage: UNKNOWN
     Route: 064
  6. FOLIC ACID. [Suspect]
     Active Substance: FOLIC ACID
     Route: 064
  7. ASCORBIC ACID. [Suspect]
     Active Substance: ASCORBIC ACID
     Route: 064
  8. CYANOCOBALAMIN (+) FERROUS SULFATE (+) FOLIC ACID [Suspect]
     Active Substance: CYANOCOBALAMIN\FERROUS SULFATE\FOLIC ACID
     Route: 064
  9. RIBOFLAVIN [Suspect]
     Active Substance: RIBOFLAVIN
     Route: 064

REACTIONS (7)
  - Multiple congenital abnormalities [Unknown]
  - Pulmonary valve stenosis [Recovered/Resolved]
  - Caesarean section [None]
  - Premature baby [Unknown]
  - Maternal drugs affecting foetus [None]
  - Foetal exposure during pregnancy [Recovered/Resolved]
  - Scrotal disorder [Recovered/Resolved]
